FAERS Safety Report 21239097 (Version 3)
Quarter: 2022Q3

REPORT INFORMATION
  Report Type: Spontaneous
  Country: JP (occurrence: JP)
  Receive Date: 20220822
  Receipt Date: 20220906
  Transmission Date: 20221026
  Serious: Yes (Death, Other)
  Sender: FDA-Public Use
  Company Number: JP-MSD-M2022-34235

PATIENT
  Age: 73 Year
  Sex: Male
  Weight: 59 kg

DRUGS (10)
  1. LAGEVRIO [Suspect]
     Active Substance: MOLNUPIRAVIR
     Indication: COVID-19 treatment
     Dosage: 800 MILLIGRAM, BID
     Route: 048
     Dates: start: 20220802, end: 20220806
  2. RISPERIDONE [Suspect]
     Active Substance: RISPERIDONE
     Dosage: 2 MILLIGRAM, TID
     Route: 048
     Dates: end: 20220806
  3. RISPERIDONE [Suspect]
     Active Substance: RISPERIDONE
     Dosage: 1 MILLIGRAM, TID
     Route: 048
     Dates: end: 20220806
  4. BROMAZEPAM [Suspect]
     Active Substance: BROMAZEPAM
     Dosage: 5 MILLIGRAM, TID
     Route: 048
     Dates: end: 20220806
  5. PANTETHINE [Suspect]
     Active Substance: PANTETHINE
     Dosage: 200, TID
     Route: 048
     Dates: end: 20220806
  6. CLOXAZOLAM [Suspect]
     Active Substance: CLOXAZOLAM
     Dosage: 1 MILLIGRAM, TID
     Route: 048
     Dates: end: 20220806
  7. FLUNITRAZEPAM [Suspect]
     Active Substance: FLUNITRAZEPAM
     Dosage: 1 MILLIGRAM, QD
     Route: 048
     Dates: end: 20220806
  8. QUETIAPINE FUMARATE [Suspect]
     Active Substance: QUETIAPINE FUMARATE
     Dosage: 100 MILLIGRAM, QD
     Route: 048
     Dates: end: 20220806
  9. HIBERNA [Suspect]
     Active Substance: PROMETHAZINE HYDROCHLORIDE
     Dosage: 25 MILLIGRAM, QD
     Route: 048
     Dates: end: 20220806
  10. CALONAL [Suspect]
     Active Substance: ACETAMINOPHEN
     Dosage: 200 MILLIGRAM, TID
     Route: 048
     Dates: start: 20220806, end: 20220806

REACTIONS (3)
  - Neoplasm malignant [Fatal]
  - Asphyxia [Fatal]
  - Drug ineffective [Unknown]

NARRATIVE: CASE EVENT DATE: 20220801
